FAERS Safety Report 10066467 (Version 2)
Quarter: 2014Q2

REPORT INFORMATION
  Report Type: Report from Study
  Country: GR (occurrence: GR)
  Receive Date: 20140408
  Receipt Date: 20140617
  Transmission Date: 20141212
  Serious: Yes (Other)
  Sender: FDA-Public Use
  Company Number: PHHY2014GR041092

PATIENT
  Age: 37 Year
  Sex: Female
  Weight: 55 kg

DRUGS (2)
  1. FTY 720 [Suspect]
     Indication: MULTIPLE SCLEROSIS
     Dosage: 0.5 MG, QD
     Route: 048
     Dates: start: 20130606
  2. CORTICOSTEROID NOS [Concomitant]

REACTIONS (6)
  - Abscess [Recovered/Resolved]
  - Genital herpes zoster [Recovered/Resolved]
  - Oedema genital [Unknown]
  - Genital pain [Unknown]
  - Genital rash [Unknown]
  - Herpes zoster cutaneous disseminated [Unknown]
